FAERS Safety Report 4561825-5 (Version None)
Quarter: 2005Q1

REPORT INFORMATION
  Report Type: 
  Country: None (occurrence: None)
  Receive Date: 20050126
  Receipt Date: 20050114
  Transmission Date: 20050727
  Serious: Yes (Death)
  Sender: FDA-Public Use
  Company Number: FR-MERCK-0501USA02737

PATIENT

DRUGS (1)
  1. ELSPAR [Suspect]
     Route: 065

REACTIONS (1)
  - STREPTOCOCCAL SEPSIS [None]
